FAERS Safety Report 8105656-8 (Version None)
Quarter: 2012Q1

REPORT INFORMATION
  Report Type: 
  Country: None (occurrence: None)
  Receive Date: 20120201
  Receipt Date: 20120124
  Transmission Date: 20120608
  Serious: Yes (Other)
  Sender: FDA-Public Use
  Company Number: CHPA2012US001973

PATIENT
  Sex: Female

DRUGS (1)
  1. EXCEDRIN (MIGRAINE) [Suspect]
     Dosage: 3-6 DF, QD
     Route: 048

REACTIONS (3)
  - CONVULSION [None]
  - INCORRECT DRUG ADMINISTRATION DURATION [None]
  - OPIATES POSITIVE [None]
